FAERS Safety Report 18175935 (Version 6)
Quarter: 2020Q4

REPORT INFORMATION
  Report Type: Spontaneous
  Country: DE (occurrence: DE)
  Receive Date: 20200820
  Receipt Date: 20201007
  Transmission Date: 20210113
  Serious: Yes (Hospitalization)
  Sender: FDA-Public Use
  Company Number: DE-TEVA-2020-DE-1814792

PATIENT
  Age: 38 Year
  Sex: Female
  Weight: 60 kg

DRUGS (3)
  1. YASMIN [Concomitant]
     Active Substance: DROSPIRENONE\ETHINYL ESTRADIOL
     Dosage: PERMANENT IN LONG TERM CYCLE
     Route: 065
  2. AJOVY [Suspect]
     Active Substance: FREMANEZUMAB-VFRM
     Indication: MIGRAINE
     Dosage: INJECTION SITE: ABDOMEN, SELF INJECTION
     Route: 058
     Dates: start: 20200728
  3. ALLGEGRO/FROVATRIPTAN [Concomitant]
     Dosage: UP TO 10 TIMES A MONTH
     Route: 065

REACTIONS (21)
  - Swollen tongue [Recovered/Resolved]
  - Urticaria [Recovered/Resolved]
  - Asthenia [Not Recovered/Not Resolved]
  - Dizziness [Not Recovered/Not Resolved]
  - Fatigue [Not Recovered/Not Resolved]
  - Myalgia [Unknown]
  - Performance status decreased [Not Recovered/Not Resolved]
  - Muscular weakness [Not Recovered/Not Resolved]
  - Anaphylactic reaction [Recovered/Resolved]
  - Nausea [Not Recovered/Not Resolved]
  - Impaired work ability [Not Recovered/Not Resolved]
  - Cardiac discomfort [Not Recovered/Not Resolved]
  - Oral dysaesthesia [Recovered/Resolved]
  - Headache [Unknown]
  - Dysphagia [Recovered/Resolved]
  - Palpitations [Not Recovered/Not Resolved]
  - Disturbance in attention [Not Recovered/Not Resolved]
  - Dyspnoea [Recovered/Resolved]
  - Speech disorder [Unknown]
  - Hypertension [Not Recovered/Not Resolved]
  - Night sweats [Unknown]

NARRATIVE: CASE EVENT DATE: 2020
